FAERS Safety Report 18926478 (Version 1)
Quarter: 2021Q1

REPORT INFORMATION
  Report Type: Spontaneous
  Country: AU (occurrence: AU)
  Receive Date: 20210223
  Receipt Date: 20210223
  Transmission Date: 20210420
  Serious: Yes (Other)
  Sender: FDA-Public Use
  Company Number: AU-PFIZER INC-2021138998

PATIENT
  Age: 34 Year
  Sex: Female

DRUGS (3)
  1. ELELYSO [Suspect]
     Active Substance: TALIGLUCERASE ALFA
     Indication: GAUCHER^S DISEASE
     Dosage: 4200 UNITS 2/52
     Dates: start: 2016
  2. FERROGRAD C [Concomitant]
     Active Substance: ASCORBIC ACID\FERROUS SULFATE
     Dosage: UNK UNK, DAILY
  3. CETIRIZINE [Concomitant]
     Active Substance: CETIRIZINE HYDROCHLORIDE
     Dosage: 10 MG

REACTIONS (1)
  - Blood iron decreased [Unknown]

NARRATIVE: CASE EVENT DATE: 202012
